FAERS Safety Report 9377713 (Version 1)
Quarter: 2013Q3

REPORT INFORMATION
  Report Type: Spontaneous
  Country: US (occurrence: US)
  Receive Date: 20130701
  Receipt Date: 20130701
  Transmission Date: 20140515
  Serious: No
  Sender: FDA-Public Use
  Company Number: US-COVIDIEN/TYCO HEALTHCARE/MALLINCKRODT-T201303343

PATIENT
  Age: 13 Year
  Sex: Male
  Weight: 43.54 kg

DRUGS (2)
  1. METHYLPHENIDATE HYDROCHLORIDE EXTENDED RELEASE TABLETS [Suspect]
     Indication: ATTENTION DEFICIT/HYPERACTIVITY DISORDER
     Dosage: 36 MG, UNK
     Route: 048
     Dates: start: 201304, end: 201304
  2. METHYLPHENIDATE [Concomitant]
     Dosage: UNK
     Dates: start: 2012

REACTIONS (3)
  - Feeling abnormal [Unknown]
  - Disturbance in attention [Recovered/Resolved]
  - Drug effect decreased [Recovered/Resolved]
